FAERS Safety Report 14358704 (Version 1)
Quarter: 2018Q1

REPORT INFORMATION
  Report Type: Spontaneous
  Country: US (occurrence: US)
  Receive Date: 20180105
  Receipt Date: 20180105
  Transmission Date: 20180509
  Serious: No
  Sender: FDA-Public Use
  Company Number: US-SA-2017SA248039

PATIENT
  Age: 49 Year
  Sex: Female

DRUGS (1)
  1. DUPIXENT [Suspect]
     Active Substance: DUPILUMAB
     Indication: DERMATITIS ATOPIC
     Route: 058
     Dates: start: 20171106

REACTIONS (5)
  - Nasopharyngitis [Unknown]
  - Vomiting [Unknown]
  - Diarrhoea [Unknown]
  - Influenza [Unknown]
  - Feeling cold [Unknown]

NARRATIVE: CASE EVENT DATE: 20171127
